FAERS Safety Report 17501410 (Version 1)
Quarter: 2020Q1

REPORT INFORMATION
  Report Type: Spontaneous
  Country: IT (occurrence: IT)
  Receive Date: 20200305
  Receipt Date: 20200305
  Transmission Date: 20200409
  Serious: Yes (Hospitalization, Other)
  Sender: FDA-Public Use
  Company Number: IT-MYLANLABS-2020M1016554

PATIENT
  Age: 75 Year
  Sex: Male

DRUGS (13)
  1. GANCICLOVIR                        /00784202/ [Suspect]
     Active Substance: GANCICLOVIR SODIUM
     Indication: CYTOMEGALOVIRUS INFECTION
     Dosage: 5 MILLIGRAM/KILOGRAM, BID, INDUCTION TREATMENT
     Route: 065
     Dates: start: 20170918, end: 20170929
  2. RITUXIMAB. [Suspect]
     Active Substance: RITUXIMAB
     Dosage: UNK
     Route: 065
  3. BENDAMUSTINE HYDROCHLORIDE. [Suspect]
     Active Substance: BENDAMUSTINE HYDROCHLORIDE
     Dosage: 130 MG, CYCLIC (CYCLE 3)
     Route: 042
     Dates: start: 20170307
  4. RITUXIMAB. [Suspect]
     Active Substance: RITUXIMAB
     Indication: WALDENSTROM^S MACROGLOBULINAEMIA
     Dosage: 600 MG, CYCLIC (6 CYCLE)
     Route: 065
  5. BENDAMUSTINE HYDROCHLORIDE. [Suspect]
     Active Substance: BENDAMUSTINE HYDROCHLORIDE
     Dosage: UNK UNK, 6 CYCLE
     Route: 065
  6. FOSCARNET                          /00731302/ [Concomitant]
     Active Substance: FOSCARNET SODIUM
     Indication: CYTOMEGALOVIRUS INFECTION
     Dosage: 150 MILLIGRAM/KILOGRAM, QD
     Route: 065
     Dates: start: 20171003, end: 20171016
  7. BENDAMUSTINE HYDROCHLORIDE. [Suspect]
     Active Substance: BENDAMUSTINE HYDROCHLORIDE
     Dosage: 130 MG, CYCLIC (CYCLE 4)
     Route: 042
     Dates: start: 20170404
  8. BENDAMUSTINE HYDROCHLORIDE. [Suspect]
     Active Substance: BENDAMUSTINE HYDROCHLORIDE
     Dosage: 130 MG, CYCLIC (CYCLE 5)
     Route: 042
     Dates: start: 20170502
  9. BENDAMUSTINE HYDROCHLORIDE. [Suspect]
     Active Substance: BENDAMUSTINE HYDROCHLORIDE
     Dosage: 130 MG, CYCLIC (CYCLE 6)
     Route: 042
     Dates: start: 20170606, end: 20170607
  10. BENDAMUSTINE HYDROCHLORIDE. [Suspect]
     Active Substance: BENDAMUSTINE HYDROCHLORIDE
     Indication: WALDENSTROM^S MACROGLOBULINAEMIA
     Dosage: 130 MG,  CYCLIC ( CYCLE1 )
     Route: 042
     Dates: start: 20170110
  11. BENDAMUSTINE HYDROCHLORIDE. [Suspect]
     Active Substance: BENDAMUSTINE HYDROCHLORIDE
     Indication: LYMPHOPLASMACYTOID LYMPHOMA/IMMUNOCYTOMA
     Dosage: 130 MG, CYCLIC (CYCLE 2)
     Route: 042
     Dates: start: 20170207
  12. LEVETIRACETAM. [Suspect]
     Active Substance: LEVETIRACETAM
     Indication: PRODUCT USED FOR UNKNOWN INDICATION
     Dosage: UNK
     Route: 065
  13. VALGANCICLOVIR. [Suspect]
     Active Substance: VALGANCICLOVIR
     Indication: CYTOMEGALOVIRUS INFECTION
     Dosage: 450 MILLIGRAM, QD
     Route: 065
     Dates: start: 20171106

REACTIONS (13)
  - Cytomegalovirus gastritis [Unknown]
  - Disseminated cytomegaloviral infection [Recovered/Resolved]
  - Cytomegalovirus chorioretinitis [Recovering/Resolving]
  - Product use in unapproved indication [Unknown]
  - Encephalitis [Recovered/Resolved]
  - Colitis [Recovered/Resolved]
  - Cytomegalovirus colitis [Unknown]
  - Gastritis [Recovered/Resolved]
  - Encephalitis cytomegalovirus [Recovered/Resolved]
  - Retinitis [Recovered/Resolved]
  - Lymphopenia [Not Recovered/Not Resolved]
  - Hallucination [Recovered/Resolved]
  - Neutropenia [Unknown]
